FAERS Safety Report 25417176 (Version 1)
Quarter: 2025Q2

REPORT INFORMATION
  Report Type: Spontaneous
  Country: GB (occurrence: GB)
  Receive Date: 20250610
  Receipt Date: 20250610
  Transmission Date: 20250716
  Serious: Yes (Other)
  Sender: MYLAN
  Company Number: GB-MHRA-TPP43549051C10075019YC1748882057251

PATIENT
  Age: 67 Year
  Sex: Female
  Weight: 80 kg

DRUGS (32)
  1. APIXABAN [Suspect]
     Active Substance: APIXABAN
     Indication: Ill-defined disorder
     Dosage: 5 MILLIGRAM, BID (TAKE ONE TWICE DAILY)
     Dates: start: 20250409
  2. APIXABAN [Suspect]
     Active Substance: APIXABAN
     Dosage: 5 MILLIGRAM, BID (TAKE ONE TWICE DAILY)
     Route: 065
     Dates: start: 20250409
  3. APIXABAN [Suspect]
     Active Substance: APIXABAN
     Dosage: 5 MILLIGRAM, BID (TAKE ONE TWICE DAILY)
     Route: 065
     Dates: start: 20250409
  4. APIXABAN [Suspect]
     Active Substance: APIXABAN
     Dosage: 5 MILLIGRAM, BID (TAKE ONE TWICE DAILY)
     Dates: start: 20250409
  5. FUROSEMIDE [Concomitant]
     Active Substance: FUROSEMIDE
     Indication: Ill-defined disorder
     Dosage: 1 DOSAGE FORM, AM (TAKE ONE IN THE MORNING)
     Dates: start: 20250506
  6. FUROSEMIDE [Concomitant]
     Active Substance: FUROSEMIDE
     Dosage: 1 DOSAGE FORM, AM (TAKE ONE IN THE MORNING)
     Route: 065
     Dates: start: 20250506
  7. FUROSEMIDE [Concomitant]
     Active Substance: FUROSEMIDE
     Dosage: 1 DOSAGE FORM, AM (TAKE ONE IN THE MORNING)
     Route: 065
     Dates: start: 20250506
  8. FUROSEMIDE [Concomitant]
     Active Substance: FUROSEMIDE
     Dosage: 1 DOSAGE FORM, AM (TAKE ONE IN THE MORNING)
     Dates: start: 20250506
  9. LANSOPRAZOLE [Concomitant]
     Active Substance: LANSOPRAZOLE
     Indication: Gastrointestinal disorder prophylaxis
     Dosage: 1 DOSAGE FORM, QD (TAKE ONE DAILY FOR STOMACH PROTECTION - REPLACE)
     Dates: start: 20230112
  10. LANSOPRAZOLE [Concomitant]
     Active Substance: LANSOPRAZOLE
     Dosage: 1 DOSAGE FORM, QD (TAKE ONE DAILY FOR STOMACH PROTECTION - REPLACE)
     Route: 065
     Dates: start: 20230112
  11. LANSOPRAZOLE [Concomitant]
     Active Substance: LANSOPRAZOLE
     Dosage: 1 DOSAGE FORM, QD (TAKE ONE DAILY FOR STOMACH PROTECTION - REPLACE)
     Route: 065
     Dates: start: 20230112
  12. LANSOPRAZOLE [Concomitant]
     Active Substance: LANSOPRAZOLE
     Dosage: 1 DOSAGE FORM, QD (TAKE ONE DAILY FOR STOMACH PROTECTION - REPLACE)
     Dates: start: 20230112
  13. COCODAMOL [Concomitant]
     Active Substance: ACETAMINOPHEN\CODEINE PHOSPHATE
     Indication: Ill-defined disorder
     Dosage: 2 DOSAGE FORM, BID (TAKE 2 TABLETS TWICE A DAY AND MAY INCREASE UP)
     Dates: start: 20230214
  14. COCODAMOL [Concomitant]
     Active Substance: ACETAMINOPHEN\CODEINE PHOSPHATE
     Dosage: 2 DOSAGE FORM, BID (TAKE 2 TABLETS TWICE A DAY AND MAY INCREASE UP)
     Route: 065
     Dates: start: 20230214
  15. COCODAMOL [Concomitant]
     Active Substance: ACETAMINOPHEN\CODEINE PHOSPHATE
     Dosage: 2 DOSAGE FORM, BID (TAKE 2 TABLETS TWICE A DAY AND MAY INCREASE UP)
     Route: 065
     Dates: start: 20230214
  16. COCODAMOL [Concomitant]
     Active Substance: ACETAMINOPHEN\CODEINE PHOSPHATE
     Dosage: 2 DOSAGE FORM, BID (TAKE 2 TABLETS TWICE A DAY AND MAY INCREASE UP)
     Dates: start: 20230214
  17. NAPROXEN [Concomitant]
     Active Substance: NAPROXEN
     Indication: Ill-defined disorder
     Dosage: 1 DOSAGE FORM, BID (ONE TO BE TAKEN TWICE A DAY AFTER FOOD - OA)
     Dates: start: 20230214, end: 20250409
  18. NAPROXEN [Concomitant]
     Active Substance: NAPROXEN
     Indication: Osteoarthritis
     Dosage: 1 DOSAGE FORM, BID (ONE TO BE TAKEN TWICE A DAY AFTER FOOD - OA)
     Route: 065
     Dates: start: 20230214, end: 20250409
  19. NAPROXEN [Concomitant]
     Active Substance: NAPROXEN
     Dosage: 1 DOSAGE FORM, BID (ONE TO BE TAKEN TWICE A DAY AFTER FOOD - OA)
     Route: 065
     Dates: start: 20230214, end: 20250409
  20. NAPROXEN [Concomitant]
     Active Substance: NAPROXEN
     Dosage: 1 DOSAGE FORM, BID (ONE TO BE TAKEN TWICE A DAY AFTER FOOD - OA)
     Dates: start: 20230214, end: 20250409
  21. SERTRALINE [Concomitant]
     Active Substance: SERTRALINE HYDROCHLORIDE
     Indication: Ill-defined disorder
     Dosage: 150 MILLIGRAM, QD (THREE (150MG) TO BE TAKEN DAILY WITH BREAKFAST)
     Dates: start: 20240126
  22. SERTRALINE [Concomitant]
     Active Substance: SERTRALINE HYDROCHLORIDE
     Dosage: 150 MILLIGRAM, QD (THREE (150MG) TO BE TAKEN DAILY WITH BREAKFAST)
     Route: 065
     Dates: start: 20240126
  23. SERTRALINE [Concomitant]
     Active Substance: SERTRALINE HYDROCHLORIDE
     Dosage: 150 MILLIGRAM, QD (THREE (150MG) TO BE TAKEN DAILY WITH BREAKFAST)
     Route: 065
     Dates: start: 20240126
  24. SERTRALINE [Concomitant]
     Active Substance: SERTRALINE HYDROCHLORIDE
     Dosage: 150 MILLIGRAM, QD (THREE (150MG) TO BE TAKEN DAILY WITH BREAKFAST)
     Dates: start: 20240126
  25. Xailin night [Concomitant]
     Indication: Ill-defined disorder
  26. Xailin night [Concomitant]
     Route: 047
  27. Xailin night [Concomitant]
     Route: 047
  28. Xailin night [Concomitant]
  29. MORPHINE SULFATE [Concomitant]
     Active Substance: MORPHINE SULFATE
     Indication: Pain
     Dosage: UNK, QID (5-10MLS FOUR TIMES A DAY AS REQUIRED FOR PAIN C...)
     Dates: start: 20240828
  30. MORPHINE SULFATE [Concomitant]
     Active Substance: MORPHINE SULFATE
     Dosage: UNK, QID (5-10MLS FOUR TIMES A DAY AS REQUIRED FOR PAIN C...)
     Route: 065
     Dates: start: 20240828
  31. MORPHINE SULFATE [Concomitant]
     Active Substance: MORPHINE SULFATE
     Dosage: UNK, QID (5-10MLS FOUR TIMES A DAY AS REQUIRED FOR PAIN C...)
     Route: 065
     Dates: start: 20240828
  32. MORPHINE SULFATE [Concomitant]
     Active Substance: MORPHINE SULFATE
     Dosage: UNK, QID (5-10MLS FOUR TIMES A DAY AS REQUIRED FOR PAIN C...)
     Dates: start: 20240828

REACTIONS (3)
  - Muscle contractions involuntary [Unknown]
  - Oedema [Unknown]
  - Abnormal weight gain [Unknown]
